FAERS Safety Report 6428496-4 (Version None)
Quarter: 2009Q4

REPORT INFORMATION
  Report Type: 
  Country: None (occurrence: None)
  Receive Date: 20091105
  Receipt Date: 20091027
  Transmission Date: 20100525
  Serious: Yes (Other)
  Sender: FDA-Public Use
  Company Number: US-BAYER-200937699NA

PATIENT
  Sex: Male

DRUGS (2)
  1. MAGNEVIST [Suspect]
     Indication: NUCLEAR MAGNETIC RESONANCE IMAGING
     Dates: start: 20030101, end: 20030101
  2. MAGNEVIST [Suspect]
     Dates: start: 20070101, end: 20070101

REACTIONS (1)
  - NEPHROGENIC SYSTEMIC FIBROSIS [None]
